FAERS Safety Report 4374341-0 (Version None)
Quarter: 2004Q2

REPORT INFORMATION
  Report Type: 
  Country: None (occurrence: None)
  Receive Date: 20040608
  Receipt Date: 20040608
  Transmission Date: 20050107
  Serious: Yes (Hospitalization)
  Sender: FDA-Public Use
  Company Number: None

PATIENT
  Age: 64 Year
  Sex: Male
  Weight: 104.3273 kg

DRUGS (4)
  1. IBUPROFEN [Suspect]
     Indication: ARTHRALGIA
  2. FUROSEMIDE [Concomitant]
  3. NIFEDIPINE [Concomitant]
  4. VALSARTAN [Concomitant]

REACTIONS (4)
  - ANAEMIA [None]
  - MELAENA [None]
  - NAUSEA [None]
  - OESOPHAGEAL ULCER [None]
